FAERS Safety Report 5974262-3 (Version None)
Quarter: 2008Q4

REPORT INFORMATION
  Report Type: 
  Country: None (occurrence: None)
  Receive Date: 20081201
  Receipt Date: 20081201
  Transmission Date: 20090506
  Serious: Yes (Hospitalization, Disabling)
  Sender: FDA-Public Use
  Company Number: GB-PFIZER INC-2008101127

PATIENT
  Age: 49 Year
  Sex: Female

DRUGS (5)
  1. SUTENT [Suspect]
     Indication: RENAL CANCER
     Route: 048
     Dates: start: 20080903, end: 20080922
  2. AMITRIPTYLINE HCL [Concomitant]
     Route: 048
  3. MORPHINE [Concomitant]
     Route: 048
  4. OMEPRAZOLE [Concomitant]
     Route: 048
  5. SPIRONOLACTONE [Concomitant]
     Route: 048

REACTIONS (2)
  - INTERTRIGO [None]
  - RASH [None]
